FAERS Safety Report 16271928 (Version 1)
Quarter: 2019Q2

REPORT INFORMATION
  Report Type: Report from Study
  Country: ZA (occurrence: ZA)
  Receive Date: 20190503
  Receipt Date: 20190503
  Transmission Date: 20190711
  Serious: Yes (Hospitalization)
  Sender: FDA-Public Use
  Company Number: ZA-SA-2019SA118980

PATIENT
  Age: 37 Year
  Sex: Female

DRUGS (4)
  1. LANTUS [Concomitant]
     Active Substance: INSULIN GLARGINE
     Dosage: AT BED TIME-12 UNITS12 U, HS
     Dates: start: 20190409
  2. NOVORAPID [Concomitant]
     Active Substance: INSULIN ASPART
     Dosage: 12 U, TID
     Dates: start: 20190409
  3. INSULIN GLARGINE [Suspect]
     Active Substance: INSULIN GLARGINE
     Dosage: AT BED TIME-18 UNITS, BEFORE BREAKFAST-12 UNITS , BID
     Dates: start: 20190426
  4. NO STUDY DRUG GIVEN [Suspect]
     Active Substance: UNSPECIFIED INGREDIENT
     Dosage: UNK

REACTIONS (3)
  - Glycosylated haemoglobin increased [Recovered/Resolved]
  - Inappropriate schedule of product administration [Unknown]
  - Malaise [Recovered/Resolved]
